FAERS Safety Report 5601167-X (Version None)
Quarter: 2008Q1

REPORT INFORMATION
  Report Type: 
  Country: None (occurrence: None)
  Receive Date: 20080122
  Receipt Date: 20080122
  Transmission Date: 20080703
  Serious: Yes (Hospitalization)
  Sender: FDA-Public Use
  Company Number: None

PATIENT
  Age: 53 Year
  Sex: Male
  Weight: 84.8226 kg

DRUGS (1)
  1. CIPRO [Suspect]
     Indication: DYSURIA
     Dates: start: 20071006, end: 20071011

REACTIONS (2)
  - ECONOMIC PROBLEM [None]
  - TENDON RUPTURE [None]
